FAERS Safety Report 6078185-3 (Version None)
Quarter: 2009Q1

REPORT INFORMATION
  Report Type: 
  Country: None (occurrence: None)
  Receive Date: 20090213
  Receipt Date: 20090205
  Transmission Date: 20090719
  Serious: Yes (Hospitalization)
  Sender: FDA-Public Use
  Company Number: PHHY2009GT04081

PATIENT
  Age: 60 Year
  Sex: Male

DRUGS (6)
  1. STARLIX [Suspect]
     Indication: DIABETES MELLITUS
     Dosage: 180 MG/DAY (60 MG EVERY 8 HOURS)
     Route: 048
     Dates: start: 20060101, end: 20090203
  2. METFORMIN HCL [Concomitant]
     Dosage: 1700 MG/DAY (850 MG TWICE DAILY)
     Route: 048
  3. GABAPENTIN [Concomitant]
     Dosage: 1200 MG/DAY ( 400 MG THRICE DAILY)
     Route: 048
  4. IRBESARTAN [Concomitant]
     Dosage: 300 MG/DAY (150 MG EVERY 12 HOURS)
     Route: 048
  5. HYPERLIPEN [Concomitant]
     Dosage: 200 MG/DAY (100 MG EVERY 12 HOURS)
     Route: 048
  6. LANSOPRAZOLE [Concomitant]
     Dosage: 30MG/DAY
     Route: 048

REACTIONS (3)
  - ANAEMIA [None]
  - HYPERGLYCAEMIA [None]
  - SIMPLE PARTIAL SEIZURES [None]
